FAERS Safety Report 10071255 (Version 1)
Quarter: 2014Q2

REPORT INFORMATION
  Report Type: Spontaneous
  Country: US (occurrence: US)
  Receive Date: 20140410
  Receipt Date: 20140410
  Transmission Date: 20141212
  Serious: No
  Sender: FDA-Public Use
  Company Number: US-SA-2014SA017654

PATIENT
  Age: 66 Year
  Sex: Female

DRUGS (1)
  1. ALLEGRA [Suspect]
     Indication: SEASONAL ALLERGY
     Dosage: DOSE:0.5 TEASPOON(S)
     Route: 048
     Dates: start: 20140209, end: 20140209

REACTIONS (4)
  - Panic attack [Recovered/Resolved]
  - Tremor [Recovered/Resolved]
  - Feeling abnormal [Recovered/Resolved]
  - Drug administered to patient of inappropriate age [Unknown]
